FAERS Safety Report 24600986 (Version 1)
Quarter: 2024Q4

REPORT INFORMATION
  Report Type: Spontaneous
  Country: GB (occurrence: GB)
  Receive Date: 20241110
  Receipt Date: 20241110
  Transmission Date: 20250115
  Serious: Yes (Other)
  Sender: ORGANON
  Company Number: None

PATIENT
  Age: 91 Year
  Sex: Male
  Weight: 63 kg

DRUGS (18)
  1. FOSAMAX [Suspect]
     Active Substance: ALENDRONATE SODIUM
     Indication: Ill-defined disorder
     Dosage: 70 MILLIGRAM, QW
     Dates: start: 20240816
  2. FOSAMAX [Suspect]
     Active Substance: ALENDRONATE SODIUM
     Indication: Adverse drug reaction
     Dosage: UNK
     Dates: start: 20240901, end: 20241104
  3. PREDNISOLONE [Concomitant]
     Active Substance: PREDNISOLONE
     Indication: Ill-defined disorder
     Dosage: ONE TABLET DAILY (TOTAL DOSE 12.5MG) FOR 3 WEEKS AND THEN REVIEW
     Dates: start: 20240815
  4. ADCAL [CALCIUM CARBONATE;CALCIUM GLUCONATE;CALCIUM LACTATE;ERGOCALCIFE [Concomitant]
     Indication: Ill-defined disorder
     Dosage: TAKE TWO TWICE DAILY
     Dates: start: 20200413
  5. AMIODARONE [Concomitant]
     Active Substance: AMIODARONE
     Indication: Ill-defined disorder
     Dosage: ONE TO BE TAKEN DAILY
     Dates: start: 20200413, end: 20241022
  6. APIXABAN [Concomitant]
     Active Substance: APIXABAN
     Indication: Ill-defined disorder
     Dosage: TAKE ONE TWICE DAILY FOR LIFE
     Dates: start: 20200413
  7. AVEENO [Concomitant]
     Active Substance: DIMETHICONE\HOMOSALATE\OCTINOXATE\OCTISALATE\TITANIUM DIOXIDE
     Indication: Ill-defined disorder
     Dosage: TWICE A DAY
     Dates: start: 20200413
  8. EZETIMIBE [Concomitant]
     Active Substance: EZETIMIBE
     Indication: Ill-defined disorder
     Dosage: ONE TO BE TAKEN DAILY
     Dates: start: 20200413
  9. FINASTERIDE [Concomitant]
     Active Substance: FINASTERIDE
     Indication: Ill-defined disorder
     Dosage: ONE TO BE TAKEN DAILY
     Dates: start: 20200413
  10. TAMSULOSIN HYDROCHLORIDE [Concomitant]
     Active Substance: TAMSULOSIN HYDROCHLORIDE
     Indication: Ill-defined disorder
     Dosage: TAKE ONE AT NIGHT AS DIRECTED
     Dates: start: 20200413
  11. CLOPIDOGREL [Concomitant]
     Active Substance: CLOPIDOGREL BISULFATE
     Indication: Ill-defined disorder
     Dosage: TAKE ONE ONCE DAILY FOR LIFE
     Dates: start: 20230621
  12. BISOPROLOL [Concomitant]
     Active Substance: BISOPROLOL\BISOPROLOL FUMARATE
     Indication: Ill-defined disorder
     Dosage: TAKE ONE DAILY
     Dates: start: 20230622
  13. NITROGLYCERIN [Concomitant]
     Active Substance: NITROGLYCERIN
     Indication: Ill-defined disorder
     Dosage: USE ONE PUFF FOR CHEST PAIN. REPEAT AFTER 5 MIN...
     Dates: start: 20230622
  14. ATORVASTATIN [Concomitant]
     Active Substance: ATORVASTATIN
     Indication: Ill-defined disorder
     Dosage: TAKE ONE DAILY
     Dates: start: 20230624
  15. POTASSIUM BICARBONATE\SODIUM ALGINATE [Concomitant]
     Active Substance: POTASSIUM BICARBONATE\SODIUM ALGINATE
     Indication: Ill-defined disorder
     Dosage: 5ML OR 10ML 4 TIMES/DAY AS REQUIRED
     Dates: start: 20230724
  16. LANSOPRAZOLE [Concomitant]
     Active Substance: LANSOPRAZOLE
     Indication: Ill-defined disorder
     Dosage: TAKE ONE ONCE DAILY
     Dates: start: 20230724
  17. COCODAMOL [Concomitant]
     Active Substance: ACETAMINOPHEN\CODEINE PHOSPHATE
     Indication: Ill-defined disorder
     Dosage: TAKE 1 OR 2 UP TO 4 TIMES/DAY
     Dates: start: 20231205
  18. IBUPROFEN [Concomitant]
     Active Substance: IBUPROFEN
     Indication: Ill-defined disorder
     Dosage: APPLY 3 TIMES/DAY IF NEEDED FOR NECK PAIN
     Dates: start: 20231205

REACTIONS (2)
  - Toothache [Recovering/Resolving]
  - Tooth abscess [Recovering/Resolving]
